FAERS Safety Report 20166393 (Version 14)
Quarter: 2022Q3

REPORT INFORMATION
  Report Type: Report from Study
  Country: CA (occurrence: CA)
  Receive Date: 20211209
  Receipt Date: 20220921
  Transmission Date: 20221027
  Serious: Yes (Other)
  Sender: FDA-Public Use
  Company Number: CA-BRISTOL-MYERS SQUIBB COMPANY-BMS-2021-119053

PATIENT
  Age: 73 Year
  Sex: Male
  Weight: 69 kg

DRUGS (7)
  1. ORENCIA [Suspect]
     Active Substance: ABATACEPT
     Indication: Rheumatoid arthritis
     Dosage: 750 MILLIGRAM, QMO
     Route: 042
     Dates: start: 20210324
  2. ORENCIA [Suspect]
     Active Substance: ABATACEPT
     Dosage: BATCH NUMBER 1885043 EXPIRY DATE: 30-SEP-2024
     Route: 042
     Dates: start: 20210324
  3. ATORVASTATIN [Concomitant]
     Active Substance: ATORVASTATIN
     Indication: Product used for unknown indication
     Dosage: UNK
     Route: 065
  4. CLOPIDOGREL [Concomitant]
     Active Substance: CLOPIDOGREL BISULFATE
     Indication: Product used for unknown indication
     Dosage: UNK
     Route: 065
  5. CHOLECALCIFEROL [Concomitant]
     Active Substance: CHOLECALCIFEROL
     Indication: Product used for unknown indication
     Route: 065
  6. RAMIPRIL [Concomitant]
     Active Substance: RAMIPRIL
     Indication: Product used for unknown indication
     Route: 065
  7. PLAQUENIL [Concomitant]
     Active Substance: HYDROXYCHLOROQUINE SULFATE
     Indication: Product used for unknown indication
     Route: 065

REACTIONS (12)
  - Oxygen saturation decreased [Unknown]
  - Dupuytren^s contracture [Not Recovered/Not Resolved]
  - Blood pressure systolic increased [Recovered/Resolved]
  - Weight decreased [Unknown]
  - Blood pressure fluctuation [Unknown]
  - Treatment noncompliance [Unknown]
  - Viral diarrhoea [Recovered/Resolved]
  - Inappropriate schedule of product administration [Not Recovered/Not Resolved]
  - Drug ineffective [Not Recovered/Not Resolved]
  - Synovitis [Not Recovered/Not Resolved]
  - Arthralgia [Not Recovered/Not Resolved]
  - Joint range of motion decreased [Not Recovered/Not Resolved]

NARRATIVE: CASE EVENT DATE: 20211221
